FAERS Safety Report 5558618-9 (Version None)
Quarter: 2007Q4

REPORT INFORMATION
  Report Type: 
  Country: None (occurrence: None)
  Receive Date: 20071214
  Receipt Date: 20071203
  Transmission Date: 20080405
  Serious: Yes (Life-Threatening, Hospitalization)
  Sender: FDA-Public Use
  Company Number: GB-PFIZER INC-2007102639

PATIENT
  Age: 68 Year
  Sex: Female

DRUGS (12)
  1. NIFEDIPINE [Suspect]
     Indication: HYPERTENSION
     Dosage: DAILY DOSE:90MG
     Route: 048
  2. ATENOLOL [Suspect]
     Indication: HYPERTENSION
     Dosage: DAILY DOSE:100MG
     Route: 048
  3. CO-AMILOFRUSE [Suspect]
     Indication: HYPERTENSION
     Dosage: TEXT:1 DF
     Route: 048
  4. AMITRIPTLINE HCL [Concomitant]
     Indication: SLEEP DISORDER
     Dosage: DAILY DOSE:10MG
     Route: 048
  5. ACETYLSALICYLIC ACID SRT [Concomitant]
     Indication: CARDIOVASCULAR DISORDER
     Dosage: DAILY DOSE:75MG
     Route: 048
  6. ATORVASTATIN [Concomitant]
     Indication: CARDIOVASCULAR DISORDER
     Dosage: DAILY DOSE:20MG
     Route: 048
  7. COD-LIVER OIL [Concomitant]
     Indication: ARTHRITIS
  8. CO-PROXAMOL [Concomitant]
     Indication: ARTHRITIS
     Dosage: TEXT:2 DF PRN
     Route: 048
  9. GLYBURIDE [Concomitant]
     Indication: DIABETES MELLITUS
     Route: 048
     Dates: end: 20071024
  10. IBUPROFEN [Concomitant]
     Indication: ARTHRITIS
     Dosage: DAILY DOSE:400MG-TEXT:PRN
     Route: 048
  11. INSULATARD [Concomitant]
     Indication: DIABETES MELLITUS
     Dosage: DAILY DOSE:5I.U.
     Route: 058
  12. METFORMIN HCL [Concomitant]
     Indication: DIABETES MELLITUS

REACTIONS (6)
  - ATRIOVENTRICULAR BLOCK COMPLETE [None]
  - BLOOD GLUCOSE INCREASED [None]
  - BRADYCARDIA [None]
  - HYPOTENSION [None]
  - LACTIC ACIDOSIS [None]
  - MALAISE [None]
